FAERS Safety Report 16342125 (Version 1)
Quarter: 2019Q2

REPORT INFORMATION
  Report Type: Spontaneous
  Country: US (occurrence: US)
  Receive Date: 20190416
  Receipt Date: 20190416
  Transmission Date: 20190711
  Serious: Yes (Hospitalization)
  Sender: FDA-Public Use
  Company Number: None

PATIENT
  Age: 59 Year
  Sex: Female

DRUGS (14)
  1. VITAMIN C [Concomitant]
     Active Substance: ASCORBIC ACID
  2. POTASSIUM CHLORIDE. [Concomitant]
     Active Substance: POTASSIUM CHLORIDE
  3. PRADAXA [Concomitant]
     Active Substance: DABIGATRAN ETEXILATE MESYLATE
  4. MIRTAZAPINE. [Concomitant]
     Active Substance: MIRTAZAPINE
  5. LOPORAMIDE [Concomitant]
     Active Substance: LOPERAMIDE
  6. LAXAPRO [Concomitant]
  7. SILDENAFIL. [Concomitant]
     Active Substance: SILDENAFIL
  8. LETAIRIS [Suspect]
     Active Substance: AMBRISENTAN
     Indication: PULMONARY ARTERIAL HYPERTENSION
     Route: 048
     Dates: start: 201507
  9. LEVOTYROXINE [Concomitant]
  10. TORASEMIDE [Concomitant]
     Active Substance: TORSEMIDE
  11. MVI [Concomitant]
     Active Substance: VITAMINS
  12. VITAMIN B COMPLEX [Concomitant]
     Active Substance: CYANOCOBALAMIN\DEXPANTHENOL\NIACINAMIDE\PYRIDOXINE HYDROCHLORIDE\RIBOFLAVIN 5^-PHOSPHATE SODIUM\THIAMINE HYDROCHLORIDE\VITAMIN B COMPLEX
  13. LAXAPRO [Concomitant]
  14. AMIODARONE [Concomitant]
     Active Substance: AMIODARONE

REACTIONS (3)
  - Diarrhoea [None]
  - Fluid overload [None]
  - Atrial fibrillation [None]

NARRATIVE: CASE EVENT DATE: 20190329
